FAERS Safety Report 19985181 (Version 2)
Quarter: 2021Q4

REPORT INFORMATION
  Report Type: Spontaneous
  Country: JP (occurrence: JP)
  Receive Date: 20211022
  Receipt Date: 20211210
  Transmission Date: 20220303
  Serious: Yes (Hospitalization)
  Sender: FDA-Public Use
  Company Number: JP-MERCK HEALTHCARE KGAA-9272328

PATIENT
  Age: 61 Year
  Sex: Female

DRUGS (3)
  1. ERBITUX [Suspect]
     Active Substance: CETUXIMAB
     Indication: Head and neck cancer
     Dosage: 380 MG, UNKNOWN
     Route: 041
     Dates: start: 20180326
  2. CISPLATIN [Suspect]
     Active Substance: CISPLATIN
     Indication: Head and neck cancer
     Dosage: 150 MG, UNKNOWN
     Route: 041
     Dates: start: 20180326
  3. FLUOROURACIL [Suspect]
     Active Substance: FLUOROURACIL
     Indication: Head and neck cancer
     Dosage: 1500 MG, UNKNOWN
     Route: 042
     Dates: start: 20180326

REACTIONS (3)
  - Platelet count decreased [Recovered/Resolved]
  - White blood cell count decreased [Recovered/Resolved]
  - Neutrophil count decreased [Recovered/Resolved]

NARRATIVE: CASE EVENT DATE: 20180402
